FAERS Safety Report 13104099 (Version 2)
Quarter: 2020Q3

REPORT INFORMATION
  Report Type: Report from Study
  Country: BE (occurrence: BE)
  Receive Date: 20170111
  Receipt Date: 20170124
  Transmission Date: 20201105
  Serious: Yes (Other)
  Sender: FDA-Public Use
  Company Number: BE-ROCHE-1877044

PATIENT

DRUGS (2)
  1. IBANDRONIC ACID. [Suspect]
     Active Substance: IBANDRONIC ACID
     Indication: BONE CANCER METASTATIC
     Dosage: DOSE: 6 MG INFUSED OVER 15 MINUTES ON DAY?1
     Route: 042
  2. IBANDRONIC ACID. [Suspect]
     Active Substance: IBANDRONIC ACID
     Indication: BONE CANCER METASTATIC
     Dosage: FOR 12 WEEKS
     Route: 048

REACTIONS (1)
  - Gastric ulcer [Unknown]
